FAERS Safety Report 8002121-3 (Version None)
Quarter: 2011Q4

REPORT INFORMATION
  Report Type: 
  Country: None (occurrence: None)
  Receive Date: 20111222
  Receipt Date: 20111213
  Transmission Date: 20120403
  Serious: Yes (Other)
  Sender: FDA-Public Use
  Company Number: JP-PFIZER INC-2011310570

PATIENT

DRUGS (1)
  1. AMIODARONE HCL [Suspect]
     Indication: ARRHYTHMIA
     Dosage: 400 MG, 1X/DAY
     Route: 065

REACTIONS (2)
  - OVERDOSE [None]
  - VENTRICULAR EXTRASYSTOLES [None]
